FAERS Safety Report 9681535 (Version 2)
Quarter: 2013Q4

REPORT INFORMATION
  Report Type: Report from Study
  Country: US (occurrence: US)
  Receive Date: 20131111
  Receipt Date: 20131209
  Transmission Date: 20140711
  Serious: Yes (Hospitalization, Other)
  Sender: FDA-Public Use
  Company Number: US-GLAXOSMITHKLINE-A1049088A

PATIENT
  Age: 66 Year
  Sex: Male
  Weight: 74.4 kg

DRUGS (7)
  1. OFATUMUMAB [Suspect]
     Indication: CHRONIC LYMPHOCYTIC LEUKAEMIA
     Dosage: 1000MG UNKNOWN
     Route: 042
     Dates: start: 20131023
  2. INVESTIGATIONAL STUDY DRUG [Suspect]
     Indication: CHRONIC LYMPHOCYTIC LEUKAEMIA
     Dosage: 150MG TWICE PER DAY
     Route: 048
     Dates: start: 20131023
  3. FEBUXOSTAT [Concomitant]
  4. ACYCLOVIR [Concomitant]
  5. LEVETIRACETAM [Concomitant]
  6. METOPROLOL [Concomitant]
  7. KEPPRA [Concomitant]

REACTIONS (2)
  - Febrile neutropenia [Recovered/Resolved]
  - Pneumonia [Recovered/Resolved]
